FAERS Safety Report 24556768 (Version 3)
Quarter: 2024Q4

REPORT INFORMATION
  Report Type: Spontaneous
  Country: US (occurrence: US)
  Receive Date: 20241028
  Receipt Date: 20241130
  Transmission Date: 20250115
  Serious: No
  Sender: ABBVIE
  Company Number: US-ABBVIE-5972880

PATIENT
  Age: 74 Year
  Sex: Female
  Weight: 62.142 kg

DRUGS (6)
  1. RINVOQ [Suspect]
     Active Substance: UPADACITINIB
     Indication: Crohn^s disease
     Dosage: FORM STRENGTH 30MG
     Route: 048
     Dates: start: 2023
  2. LASIX [Concomitant]
     Active Substance: FUROSEMIDE
     Indication: Swelling
  3. ALDACTONE [Concomitant]
     Active Substance: SPIRONOLACTONE
     Indication: Malabsorption
  4. LEVOTHYROXINE [Concomitant]
     Active Substance: LEVOTHYROXINE
     Indication: Hypothyroidism
  5. ZETIA [Concomitant]
     Active Substance: EZETIMIBE
     Indication: Blood cholesterol increased
  6. ATENOLOL [Concomitant]
     Active Substance: ATENOLOL
     Indication: Product used for unknown indication

REACTIONS (8)
  - Drug ineffective [Recovering/Resolving]
  - Myalgia [Recovering/Resolving]
  - Diarrhoea [Recovered/Resolved]
  - Product storage error [Unknown]
  - Pyrexia [Recovering/Resolving]
  - Syncope [Unknown]
  - Head injury [Unknown]
  - Pain [Unknown]

NARRATIVE: CASE EVENT DATE: 20241001
